FAERS Safety Report 5793064-4 (Version None)
Quarter: 2008Q2

REPORT INFORMATION
  Report Type: 
  Country: None (occurrence: None)
  Receive Date: 20080627
  Receipt Date: 20080620
  Transmission Date: 20081010
  Serious: Yes (Disabling)
  Sender: FDA-Public Use
  Company Number: JP-ALLERGAN-0807506US

PATIENT
  Sex: Male

DRUGS (1)
  1. BOTOX [Suspect]
     Indication: BLEPHAROSPASM
     Dosage: 4 UNITS, SINGLE
     Route: 030
     Dates: start: 20080604, end: 20080604

REACTIONS (1)
  - VISUAL ACUITY REDUCED [None]
